FAERS Safety Report 16931724 (Version 1)
Quarter: 2019Q4

REPORT INFORMATION
  Report Type: Report from Study
  Country: ES (occurrence: ES)
  Receive Date: 20191017
  Receipt Date: 20191017
  Transmission Date: 20200122
  Serious: Yes (Hospitalization)
  Sender: FDA-Public Use
  Company Number: ES-BAUSCH-BL-2019-058104

PATIENT
  Age: 47 Year
  Sex: Male
  Weight: 114 kg

DRUGS (2)
  1. KYNTHEUM [Suspect]
     Active Substance: BRODALUMAB
     Indication: PSORIASIS
     Route: 058
     Dates: start: 20190417, end: 20190819
  2. KYNTHEUM [Suspect]
     Active Substance: BRODALUMAB
     Route: 058
     Dates: start: 20190916, end: 20190916

REACTIONS (1)
  - Pustular psoriasis [Recovering/Resolving]

NARRATIVE: CASE EVENT DATE: 20190916
